FAERS Safety Report 8958408 (Version 2)
Quarter: 2012Q4

REPORT INFORMATION
  Report Type: 
  Country: SI (occurrence: SI)
  Receive Date: 20121210
  Receipt Date: 20121219
  Transmission Date: 20130627
  Serious: Yes (Other)
  Sender: FDA-Public Use
  Company Number: SI-GLAXOSMITHKLINE-B0850748A

PATIENT
  Sex: Male

DRUGS (3)
  1. SERETIDE DISKUS [Suspect]
     Indication: CHRONIC OBSTRUCTIVE PULMONARY DISEASE
     Dosage: 2PUFF per day
     Route: 055
     Dates: start: 2002, end: 201210
  2. SPIRIVA [Concomitant]
     Indication: CHRONIC OBSTRUCTIVE PULMONARY DISEASE
     Dosage: 18UG per day
     Route: 055
  3. TEOTARD [Concomitant]
     Indication: CHRONIC OBSTRUCTIVE PULMONARY DISEASE
     Dosage: 200MG Twice per day

REACTIONS (4)
  - Adrenal suppression [Not Recovered/Not Resolved]
  - Skin disorder [Not Recovered/Not Resolved]
  - Skin atrophy [Unknown]
  - Skin haemorrhage [Unknown]
